FAERS Safety Report 8790770 (Version 1)
Quarter: 2012Q4

REPORT INFORMATION
  Report Type: Spontaneous
  Country: US (occurrence: None)
  Receive Date: 20120913
  Receipt Date: 20120913
  Transmission Date: 20130627
  Serious: No
  Sender: FDA-Public Use
  Company Number: None

PATIENT
  Age: 60 Year
  Sex: Female
  Weight: 56.7 kg

DRUGS (2)
  1. LETROZOLE [Suspect]
     Indication: CANCER
     Dosage: Dose: 1 Frequency: 1
     Route: 048
     Dates: start: 20120812, end: 20120912
  2. LETROZOLE [Suspect]
     Indication: CANCER
     Dates: start: 20120912, end: 20120912

REACTIONS (6)
  - Pain in extremity [None]
  - Hypoaesthesia [None]
  - Hypoaesthesia [None]
  - Visual impairment [None]
  - Heart rate irregular [None]
  - Product substitution issue [None]
